FAERS Safety Report 21094131 (Version 9)
Quarter: 2023Q2

REPORT INFORMATION
  Report Type: Report from Study
  Country: US (occurrence: US)
  Receive Date: 20220718
  Receipt Date: 20230501
  Transmission Date: 20230721
  Serious: No
  Sender: FDA-Public Use
  Company Number: US-NOVARTISTESTPH-NVSC2022US162174

PATIENT
  Age: 10 Year
  Sex: Male
  Weight: 40.816 kg

DRUGS (4)
  1. ILARIS [Suspect]
     Active Substance: CANAKINUMAB
     Indication: Still^s disease
     Dosage: 165 MG, Q4W
     Route: 058
     Dates: start: 20220326
  2. ILARIS [Suspect]
     Active Substance: CANAKINUMAB
     Indication: Juvenile idiopathic arthritis
     Dosage: 165 MG, Q4W
     Route: 058
     Dates: start: 20220328
  3. ILARIS [Suspect]
     Active Substance: CANAKINUMAB
     Indication: Rheumatoid arthritis
     Dosage: 106 MG, Q4W
     Route: 058
     Dates: start: 20220502
  4. ILARIS [Suspect]
     Active Substance: CANAKINUMAB
     Dosage: 180 MG, QMO
     Route: 058
     Dates: start: 20220326

REACTIONS (5)
  - Condition aggravated [Unknown]
  - Incorrect product administration duration [Unknown]
  - Incorrect dose administered [Unknown]
  - Inappropriate schedule of product administration [Unknown]
  - Product supply issue [Unknown]

NARRATIVE: CASE EVENT DATE: 20220326
